FAERS Safety Report 9205287 (Version 2)
Quarter: 2013Q2

REPORT INFORMATION
  Report Type: Spontaneous
  Country: GB (occurrence: GB)
  Receive Date: 20130402
  Receipt Date: 20130506
  Transmission Date: 20140414
  Serious: Yes (Other)
  Sender: FDA-Public Use
  Company Number: GB-PFIZER INC-2013101548

PATIENT
  Age: 89 Year
  Sex: Female
  Weight: 62 kg

DRUGS (20)
  1. TOVIAZ [Suspect]
     Indication: HYPERTONIC BLADDER
     Dosage: 4 MG, UNK
     Route: 048
     Dates: start: 201101, end: 201101
  2. TOVIAZ [Suspect]
     Indication: INCONTINENCE
     Dosage: 8 MG UNK
  3. METHADONE [Concomitant]
     Dosage: 5 MG, 2X/DAY
  4. GAVISCON ADVANCE [Concomitant]
     Dosage: 5 ML-10 ML FOUR TIMES DAILY
  5. BACTROBAN [Concomitant]
     Dosage: 2 %, 2-3 TIMES DAILY
     Route: 045
  6. CHLORAMPHENICOL [Concomitant]
     Dosage: 1 %, 2X/DAY
     Route: 047
  7. TEMAZEPAM [Concomitant]
     Dosage: 10 MG, ONCE AT NIGHT
  8. PREDNISOLONE [Concomitant]
     Dosage: 5 MG ONCE DAILY
  9. PAROXETINE [Concomitant]
     Dosage: 20 MG, ONCE DAILY
  10. OLMESARTAN [Concomitant]
     Dosage: 20 MG, ONCE DAILY
  11. METHOTREXATE [Concomitant]
     Dosage: 2.5 MG
  12. LYMECYCLINE [Concomitant]
     Dosage: 408 MG, ONCE DAILY
  13. LEVOTHYROXINE [Concomitant]
     Dosage: 25 UG, ONCE DAILY
  14. LEVOTHYROXINE [Concomitant]
     Dosage: 50 UG, ONCE DAILY
  15. LEVOTHYROXINE [Concomitant]
     Dosage: 100 UG, ONCE DAILY
  16. FOLIC ACID [Concomitant]
     Dosage: 5 MG, ONCE DAILY BUT NOT ON A MONDAY
  17. ESOMEPRAZOLE [Concomitant]
     Dosage: 40 MG ONCE DAILY
  18. CARDURA XL [Concomitant]
     Dosage: 4 MG, ONCE DAILY
  19. ALENDRONIC ACID [Concomitant]
     Dosage: 70 MG, ONCE WEEKLY ON A FRIDAY
  20. ADCAL-D3 [Concomitant]
     Dosage: 1 DF, TWICE DAILY

REACTIONS (3)
  - Hypertension [Recovered/Resolved]
  - Dizziness [Recovered/Resolved]
  - Malaise [Recovered/Resolved]
